FAERS Safety Report 18678523 (Version 1)
Quarter: 2020Q4

REPORT INFORMATION
  Report Type: Spontaneous
  Country: IT (occurrence: IT)
  Receive Date: 20201230
  Receipt Date: 20201230
  Transmission Date: 20210114
  Serious: No
  Sender: FDA-Public Use
  Company Number: IT-LUPIN PHARMACEUTICALS INC.-2020-10899

PATIENT
  Age: 29 Year
  Sex: Female

DRUGS (1)
  1. TRIAMCINOLONE ACETONIDE. [Suspect]
     Active Substance: TRIAMCINOLONE ACETONIDE
     Indication: ALOPECIA AREATA
     Dosage: TWO INTRALESIONAL INJECTIONS OF TRIAMCINOLONE 1 MONTH APART
     Route: 026

REACTIONS (3)
  - Off label use [Unknown]
  - Skin atrophy [Recovered/Resolved]
  - Mental disorder [Recovered/Resolved]
